FAERS Safety Report 9561094 (Version 1)
Quarter: 2013Q2

REPORT INFORMATION
  Report Type: Spontaneous
  Country: GB (occurrence: None)
  Receive Date: 20130403
  Receipt Date: 20130403
  Transmission Date: 20140414
  Serious: Yes (Death, Hospitalization)
  Sender: FDA-Public Use
  Company Number: 006754

PATIENT
  Age: 62 Year
  Sex: Male
  Weight: 75 kg

DRUGS (2)
  1. BUSULFEX [Suspect]
     Indication: STEM CELL TRANSPLANT
     Route: 042
     Dates: start: 20081204, end: 20081205
  2. FLUDARABINE [Suspect]
     Indication: STEM CELL TRANSPLANT
     Route: 042
     Dates: start: 20081202, end: 20081206

REACTIONS (1)
  - Venoocclusive disease [None]
